FAERS Safety Report 4453869-9 (Version None)
Quarter: 2004Q3

REPORT INFORMATION
  Report Type: 
  Country: None (occurrence: None)
  Receive Date: 20040826
  Receipt Date: 20040611
  Transmission Date: 20050211
  Serious: No
  Sender: FDA-Public Use
  Company Number: WAES 0406USA01379

PATIENT
  Age: 82 Year
  Sex: Female

DRUGS (3)
  1. ZETIA [Suspect]
     Indication: HYPERCHOLESTEROLAEMIA
     Dosage: 10 MG/DAILY/PO
     Route: 048
     Dates: start: 20040603
  2. MIACALCIN [Concomitant]
  3. ATENOLOL [Concomitant]

REACTIONS (3)
  - FATIGUE [None]
  - LOOSE STOOLS [None]
  - PRURITUS [None]
